FAERS Safety Report 15169661 (Version 6)
Quarter: 2019Q2

REPORT INFORMATION
  Report Type: Report from Study
  Country: GB (occurrence: GB)
  Receive Date: 20180720
  Receipt Date: 20190613
  Transmission Date: 20190711
  Serious: Yes (Life-Threatening, Hospitalization)
  Sender: FDA-Public Use
  Company Number: GB-ROCHE-2155601

PATIENT
  Age: 55 Year
  Sex: Female

DRUGS (40)
  1. CO-AMOXICLAV [AMOXICILLIN;CLAVULANATE POTASSIUM] [Concomitant]
     Active Substance: AMOXICILLIN\CLAVULANATE POTASSIUM
  2. DEXAMETHASONE. [Concomitant]
     Active Substance: DEXAMETHASONE
     Route: 048
     Dates: start: 20180523, end: 20180529
  3. METOCLOPRAMIDE. [Concomitant]
     Active Substance: METOCLOPRAMIDE
  4. ALVERINE [Concomitant]
     Active Substance: ALVERINE
     Route: 048
  5. DEXAMETHASONE. [Concomitant]
     Active Substance: DEXAMETHASONE
     Route: 048
     Dates: start: 20170309, end: 20170311
  6. DEXAMETHASONE. [Concomitant]
     Active Substance: DEXAMETHASONE
     Route: 048
     Dates: start: 20170315, end: 20170317
  7. PREDNISOLONE. [Concomitant]
     Active Substance: PREDNISOLONE
  8. DEXAMETHASONE. [Concomitant]
     Active Substance: DEXAMETHASONE
     Route: 048
     Dates: start: 20180516, end: 20180522
  9. DEXAMETHASONE. [Concomitant]
     Active Substance: DEXAMETHASONE
     Route: 048
     Dates: start: 20170302, end: 20170308
  10. DEXAMETHASONE. [Concomitant]
     Active Substance: DEXAMETHASONE
     Route: 048
     Dates: start: 20180315, end: 20180322
  11. TRASTUZUMAB EMTANSINE [Suspect]
     Active Substance: ADO-TRASTUZUMAB EMTANSINE
     Indication: HER-2 POSITIVE BREAST CANCER
     Route: 042
     Dates: start: 20170323
  12. ZOMORPH [Concomitant]
     Active Substance: MORPHINE SULFATE
  13. NITROFURANTOIN. [Concomitant]
     Active Substance: NITROFURANTOIN
  14. DEXAMETHASONE. [Concomitant]
     Active Substance: DEXAMETHASONE
     Route: 048
     Dates: start: 20180817, end: 20180823
  15. DEXAMETHASONE. [Concomitant]
     Active Substance: DEXAMETHASONE
     Route: 048
     Dates: start: 20180307, end: 20180314
  16. DEXAMETHASONE. [Concomitant]
     Active Substance: DEXAMETHASONE
     Route: 048
     Dates: start: 20180323, end: 20180330
  17. CALCICHEW D3 [Concomitant]
     Active Substance: CALCIUM\CHOLECALCIFEROL
  18. CLARITHROMYCIN. [Concomitant]
     Active Substance: CLARITHROMYCIN
  19. OMEPRAZOLE. [Concomitant]
     Active Substance: OMEPRAZOLE
     Route: 048
     Dates: start: 20170309
  20. PERTUZUMAB. [Suspect]
     Active Substance: PERTUZUMAB
     Indication: HER-2 POSITIVE BREAST CANCER
     Dosage: LOADING DOSE
     Route: 042
     Dates: start: 20150708
  21. ORAMORPH [MORPHINE SULFATE] [Concomitant]
     Route: 065
  22. MORPHINE SULPHATE [Concomitant]
     Active Substance: MORPHINE SULFATE
  23. DEXAMETHASONE. [Concomitant]
     Active Substance: DEXAMETHASONE
     Route: 048
     Dates: start: 20180824, end: 20180829
  24. DEXAMETHASONE. [Concomitant]
     Active Substance: DEXAMETHASONE
     Route: 048
     Dates: start: 20170223, end: 20170301
  25. DEXAMETHASONE. [Concomitant]
     Active Substance: DEXAMETHASONE
     Route: 048
     Dates: start: 20170318, end: 20170322
  26. SERETIDE [Concomitant]
     Active Substance: FLUTICASONE PROPIONATE\SALMETEROL XINAFOATE
     Dosage: 2 PUFF
     Route: 065
  27. DENOSUMAB [Concomitant]
     Active Substance: DENOSUMAB
  28. DEXAMETHASONE. [Concomitant]
     Active Substance: DEXAMETHASONE
     Route: 048
  29. ANASTROZOLE. [Suspect]
     Active Substance: ANASTROZOLE
     Indication: HER-2 POSITIVE BREAST CANCER
     Route: 048
     Dates: start: 20151202
  30. DEXAMETHASONE. [Concomitant]
     Active Substance: DEXAMETHASONE
     Route: 048
     Dates: start: 20180530, end: 20180816
  31. DEXAMETHASONE. [Concomitant]
     Active Substance: DEXAMETHASONE
     Route: 048
     Dates: start: 20170312, end: 20170314
  32. LANSOPRAZOLE. [Concomitant]
     Active Substance: LANSOPRAZOLE
  33. PERTUZUMAB. [Suspect]
     Active Substance: PERTUZUMAB
     Dosage: MANITENANCE DOSE
     Route: 042
     Dates: start: 20150730, end: 20170223
  34. DOCETAXEL. [Suspect]
     Active Substance: DOCETAXEL
     Indication: HER-2 POSITIVE BREAST CANCER
     Route: 042
     Dates: start: 20150709, end: 20151112
  35. TRASTUZUMAB. [Suspect]
     Active Substance: TRASTUZUMAB
     Indication: HER-2 POSITIVE BREAST CANCER
     Route: 042
     Dates: start: 20150708, end: 20150708
  36. TRASTUZUMAB. [Suspect]
     Active Substance: TRASTUZUMAB
     Route: 042
     Dates: start: 20150730, end: 20170223
  37. SALBUTAMOL [Concomitant]
     Active Substance: ALBUTEROL
  38. DEXAMETHASONE. [Concomitant]
     Active Substance: DEXAMETHASONE
     Indication: SOMNOLENCE
     Route: 048
     Dates: start: 20170217, end: 20170221
  39. PROCHLORPERAZINE. [Concomitant]
     Active Substance: PROCHLORPERAZINE
  40. FRAGMIN [Concomitant]
     Active Substance: DALTEPARIN SODIUM

REACTIONS (1)
  - Embolism venous [Recovering/Resolving]

NARRATIVE: CASE EVENT DATE: 20180711
